FAERS Safety Report 8849532 (Version 5)
Quarter: 2013Q3

REPORT INFORMATION
  Report Type: Spontaneous
  Country: BR (occurrence: BR)
  Receive Date: 20121019
  Receipt Date: 20130701
  Transmission Date: 20140515
  Serious: Yes (Death, Other)
  Sender: FDA-Public Use
  Company Number: BR-PFIZER INC-2012256528

PATIENT
  Age: 72 Year
  Sex: Male

DRUGS (6)
  1. SUTENT [Suspect]
     Indication: RENAL CELL CARCINOMA
     Dosage: 50 MG (ONE TABLET), ONCE DAILY
     Route: 048
     Dates: start: 20121005
  2. SUTENT [Suspect]
     Indication: RENAL CANCER
  3. PARACETAMOL WITH CODEINE [Concomitant]
  4. AAS [Concomitant]
  5. LOSARTAN [Concomitant]
     Dosage: 25 MG TWO TABLETS ONCE DAILY
  6. DIPIRONA [Concomitant]

REACTIONS (13)
  - Death [Fatal]
  - Penile exfoliation [Unknown]
  - Penile erythema [Unknown]
  - Productive cough [Not Recovered/Not Resolved]
  - Epistaxis [Not Recovered/Not Resolved]
  - Blister [Not Recovered/Not Resolved]
  - Mouth injury [Not Recovered/Not Resolved]
  - Mastication disorder [Not Recovered/Not Resolved]
  - Asthenia [Not Recovered/Not Resolved]
  - Musculoskeletal pain [Not Recovered/Not Resolved]
  - Nausea [Unknown]
  - Vomiting [Unknown]
  - Wound [Unknown]
